FAERS Safety Report 9064042 (Version 1)
Quarter: 2013Q1

REPORT INFORMATION
  Report Type: Report from Study
  Country: US (occurrence: US)
  Receive Date: 20130130
  Receipt Date: 20130130
  Transmission Date: 20140127
  Serious: No
  Sender: FDA-Public Use
  Company Number: US-ABBOTT-12P-163-0936414-00

PATIENT
  Age: 51 Year
  Sex: Female

DRUGS (1)
  1. HUMIRA 40 MG/0.8 ML PEN [Suspect]
     Indication: CROHN^S DISEASE
     Dates: start: 20120409

REACTIONS (12)
  - Feeling abnormal [Not Recovered/Not Resolved]
  - Swollen tongue [Not Recovered/Not Resolved]
  - Injection site pain [Not Recovered/Not Resolved]
  - Local swelling [Unknown]
  - Pain [Recovered/Resolved]
  - Diarrhoea [Not Recovered/Not Resolved]
  - Urinary incontinence [Unknown]
  - Urinary incontinence [Unknown]
  - Dry mouth [Recovering/Resolving]
  - Injection site pain [Recovering/Resolving]
  - Urinary incontinence [Unknown]
  - Urinary incontinence [Unknown]
